FAERS Safety Report 5240441-6 (Version None)
Quarter: 2007Q1

REPORT INFORMATION
  Report Type: 
  Country: None (occurrence: None)
  Receive Date: 20061208
  Receipt Date: 20060406
  Transmission Date: 20070707
  Serious: Yes (Other)
  Sender: FDA-Public Use
  Company Number: 2006UW06232

PATIENT
  Sex: Female

DRUGS (2)
  1. CRESTOR [Suspect]
  2. PROSED/DS [Concomitant]

REACTIONS (3)
  - OEDEMA PERIPHERAL [None]
  - URINARY RETENTION [None]
  - URINARY TRACT INFECTION [None]
